FAERS Safety Report 14846133 (Version 1)
Quarter: 2018Q2

REPORT INFORMATION
  Report Type: Spontaneous
  Country: US (occurrence: US)
  Receive Date: 20180504
  Receipt Date: 20180504
  Transmission Date: 20180711
  Serious: Yes (Other)
  Sender: FDA-Public Use
  Company Number: US-ELI_LILLY_AND_COMPANY-US201804012642

PATIENT
  Age: 60 Year
  Sex: Female

DRUGS (7)
  1. VITAMIN E                          /00110501/ [Concomitant]
     Active Substance: TOCOPHEROL
     Indication: PRODUCT USED FOR UNKNOWN INDICATION
  2. LANSOPRAZOLE. [Concomitant]
     Active Substance: LANSOPRAZOLE
     Indication: PRODUCT USED FOR UNKNOWN INDICATION
     Dosage: 30 MG, UNKNOWN
     Route: 065
  3. VITAMIN B [Concomitant]
     Active Substance: VITAMIN B
     Indication: PRODUCT USED FOR UNKNOWN INDICATION
  4. FORTEO [Suspect]
     Active Substance: TERIPARATIDE
     Indication: PRODUCT USED FOR UNKNOWN INDICATION
     Dosage: 20 UG, UNKNOWN
     Route: 058
     Dates: start: 201704
  5. DOXYCYCLINE HYCLATE. [Suspect]
     Active Substance: DOXYCYCLINE HYCLATE
     Indication: ACNE
     Dosage: 50 MG, DAILY
     Route: 065
     Dates: start: 2017
  6. CALCIUM +VIT D [Concomitant]
     Active Substance: CALCIUM\VITAMIN D
     Indication: PRODUCT USED FOR UNKNOWN INDICATION
  7. FORTEO [Suspect]
     Active Substance: TERIPARATIDE
     Dosage: 20 UG, UNKNOWN
     Route: 058

REACTIONS (16)
  - Ear pruritus [Not Recovered/Not Resolved]
  - Paraesthesia oral [Unknown]
  - Ear infection [Unknown]
  - Scratch [Unknown]
  - Skin hypertrophy [Unknown]
  - Pruritus genital [Unknown]
  - Acne [Unknown]
  - Sleep disorder due to a general medical condition [Unknown]
  - Lip erythema [Unknown]
  - Lip haemorrhage [Unknown]
  - Lip dry [Unknown]
  - Anal pruritus [Unknown]
  - Lip exfoliation [Not Recovered/Not Resolved]
  - Chapped lips [Unknown]
  - Lip pain [Unknown]
  - Lip swelling [Not Recovered/Not Resolved]

NARRATIVE: CASE EVENT DATE: 201801
